FAERS Safety Report 9334111 (Version 1)
Quarter: 2013Q2

REPORT INFORMATION
  Report Type: Spontaneous
  Country: US (occurrence: US)
  Receive Date: 20130606
  Receipt Date: 20130606
  Transmission Date: 20140414
  Serious: No
  Sender: FDA-Public Use
  Company Number: US-AMGEN-USASP2013001447

PATIENT
  Age: 75 Year
  Sex: Female

DRUGS (5)
  1. PROLIA [Suspect]
     Indication: OSTEOPOROSIS POSTMENOPAUSAL
     Dosage: 60 MG, ONE TIME DOSE
     Dates: start: 20120705
  2. TRIAMTERENE AND HYDROCHLOROTHIAZID [Concomitant]
  3. VITAMIN D                          /00107901/ [Concomitant]
     Dosage: 1000
  4. BABY ASPIRIN [Concomitant]
     Dosage: 81
  5. CALCIUM [Concomitant]

REACTIONS (4)
  - Limb discomfort [Unknown]
  - Nephrolithiasis [Unknown]
  - Dizziness postural [Recovered/Resolved]
  - Pain in extremity [Unknown]
